FAERS Safety Report 8090581-1 (Version None)
Quarter: 2012Q1

REPORT INFORMATION
  Report Type: 
  Country: None (occurrence: None)
  Receive Date: 20120129
  Receipt Date: 20111114
  Transmission Date: 20120608
  Serious: No
  Sender: FDA-Public Use
  Company Number: US-ABBOTT-11P-163-0873896-00

PATIENT
  Sex: Male
  Weight: 122.58 kg

DRUGS (5)
  1. METHOTREXATE [Concomitant]
     Indication: RHEUMATOID ARTHRITIS
  2. HYDROCODONE BITARTRATE [Concomitant]
     Indication: PAIN
  3. FOLIC ACID [Concomitant]
     Indication: RHEUMATOID ARTHRITIS
  4. HUMIRA [Suspect]
     Dates: start: 20100101, end: 20111001
  5. HUMIRA [Suspect]
     Indication: RHEUMATOID ARTHRITIS
     Dates: start: 20090101, end: 20100101

REACTIONS (3)
  - JOINT SWELLING [None]
  - ARTHRALGIA [None]
  - RHEUMATOID ARTHRITIS [None]
